APPROVED DRUG PRODUCT: JYLAMVO
Active Ingredient: METHOTREXATE
Strength: 2MG/ML
Dosage Form/Route: SOLUTION;ORAL
Application: N212479 | Product #001
Applicant: SHORLA PHARMA LTD
Approved: Nov 29, 2022 | RLD: Yes | RS: Yes | Type: RX

PATENTS:
Patent 11771701 | Expires: Oct 29, 2034
Patent 11771701 | Expires: Oct 29, 2034
Patent 11771701 | Expires: Oct 29, 2034
Patent 11771701 | Expires: Oct 29, 2034
Patent 11771701 | Expires: Oct 29, 2034
Patent 11129833 | Expires: Oct 28, 2035